FAERS Safety Report 19920710 (Version 1)
Quarter: 2021Q4

REPORT INFORMATION
  Report Type: Spontaneous
  Country: ES (occurrence: ES)
  Receive Date: 20211006
  Receipt Date: 20211006
  Transmission Date: 20220303
  Serious: Yes (Hospitalization)
  Sender: FDA-Public Use
  Company Number: ES-TEVA-2021-ES-1960938

PATIENT
  Age: 54 Year
  Sex: Female

DRUGS (1)
  1. IBUPROFEN [Suspect]
     Active Substance: IBUPROFEN
     Indication: Back pain
     Dosage: TOOK SEVERAL DOSES OF IBUPROFEN
     Route: 065

REACTIONS (3)
  - Gastric perforation [Recovered/Resolved]
  - Mucosal ulceration [Recovered/Resolved]
  - Ascites [Recovered/Resolved]
